FAERS Safety Report 4446850-7 (Version None)
Quarter: 2004Q3

REPORT INFORMATION
  Report Type: 
  Country: None (occurrence: None)
  Receive Date: 20040908
  Receipt Date: 20040825
  Transmission Date: 20050211
  Serious: Yes (Hospitalization)
  Sender: FDA-Public Use
  Company Number: 200423059FI

PATIENT
  Age: 92 Year
  Sex: Female

DRUGS (1)
  1. BEXTRA [Suspect]
     Indication: PAIN
     Dosage: ORAL
     Route: 048
     Dates: start: 20040805, end: 20040801

REACTIONS (3)
  - ANGIONEUROTIC OEDEMA [None]
  - CARDIAC FAILURE [None]
  - URTICARIA [None]
